FAERS Safety Report 6950108-1 (Version None)
Quarter: 2010Q3

REPORT INFORMATION
  Report Type: 
  Country: None (occurrence: None)
  Receive Date: 20100828
  Receipt Date: 20100303
  Transmission Date: 20110219
  Serious: No
  Sender: FDA-Public Use
  Company Number: US-ABBOTT-10P-163-0619440-00

PATIENT
  Sex: Male
  Weight: 77.18 kg

DRUGS (11)
  1. NIASPAN [Suspect]
     Indication: HIGH DENSITY LIPOPROTEIN DECREASED
     Dates: start: 20070101
  2. NIASPAN [Suspect]
     Indication: BLOOD TRIGLYCERIDES INCREASED
  3. CRESTOR [Concomitant]
     Indication: BLOOD CHOLESTEROL INCREASED
  4. LAMIPRIL [Concomitant]
     Indication: HYPERTENSION
  5. LOVAZA [Concomitant]
     Indication: CARDIAC DISORDER
  6. MULTIPLE VITAMINS [Concomitant]
     Indication: VITAMIN SUPPLEMENTATION
  7. SINGULAIR [Concomitant]
     Indication: ASTHMA
  8. SINGULAIR [Concomitant]
     Indication: EMPHYSEMA
  9. ADVAIR DISKUS 100/50 [Concomitant]
     Indication: ASTHMA
  10. ADVAIR DISKUS 100/50 [Concomitant]
     Indication: EMPHYSEMA
  11. ASPIRIN [Concomitant]
     Indication: CARDIAC DISORDER

REACTIONS (2)
  - DRUG INEFFECTIVE [None]
  - MEDICATION RESIDUE [None]
